FAERS Safety Report 6521993-2 (Version None)
Quarter: 2009Q4

REPORT INFORMATION
  Report Type: 
  Country: None (occurrence: None)
  Receive Date: 20091224
  Receipt Date: 20091221
  Transmission Date: 20100525
  Serious: Yes (Hospitalization)
  Sender: FDA-Public Use
  Company Number: 2009AC000331

PATIENT
  Age: 63 Year
  Sex: Male

DRUGS (37)
  1. DIGOXIN [Suspect]
     Dosage: 0.125 MG; PO
     Route: 048
  2. METOPROLOL TARTRATE [Concomitant]
  3. ASPIRIN [Concomitant]
  4. NITROGLYCERIN [Concomitant]
  5. NEXIUM [Concomitant]
  6. PRILOSEC [Concomitant]
  7. CYMBALTA [Concomitant]
  8. FENTANYL CITRATE [Concomitant]
  9. SPIRIVA [Concomitant]
  10. MIRALAX [Concomitant]
  11. COUMADIN [Concomitant]
  12. LOPRESSOR [Concomitant]
  13. PLAVIX [Concomitant]
  14. HYDROCODONE BITARTRATE [Concomitant]
  15. FOSAMAX [Concomitant]
  16. AUGMENTIN [Concomitant]
  17. DURAGESIC-100 [Concomitant]
  18. OMEPRAZOLE [Concomitant]
  19. MECLIZINE [Concomitant]
  20. TESTIM [Concomitant]
  21. HYDROCODONE BITARTRATE [Concomitant]
  22. OXYCODONE HCL [Concomitant]
  23. CEPHALEXIN [Concomitant]
  24. METOCLOPRAMIDE [Concomitant]
  25. NABUMETONE [Concomitant]
  26. NITROSTAT [Concomitant]
  27. GLYCOLAX [Concomitant]
  28. VYTORIN [Concomitant]
  29. VIT B12 [Concomitant]
  30. ANDROGEL [Concomitant]
  31. DURAGESIC TRANSDERMAL PATCH [Concomitant]
  32. NITROGLYCERIN [Concomitant]
  33. REGALN [Concomitant]
  34. TESTOSTERONE [Concomitant]
  35. GLYCOLAX [Concomitant]
  36. MILK OF MAGNESIA TAB [Concomitant]
  37. NORCO [Concomitant]

REACTIONS (21)
  - ABDOMINAL DISTENSION [None]
  - ABDOMINAL PAIN [None]
  - ANGINA PECTORIS [None]
  - ANXIETY [None]
  - ATRIAL FIBRILLATION [None]
  - BACK PAIN [None]
  - CHEST PAIN [None]
  - COLONIC POLYP [None]
  - DECREASED APPETITE [None]
  - DERMAL CYST [None]
  - DYSPNOEA [None]
  - ECONOMIC PROBLEM [None]
  - EPISTAXIS [None]
  - FATIGUE [None]
  - HYPOGONADISM MALE [None]
  - IMPAIRED GASTRIC EMPTYING [None]
  - MULTIPLE INJURIES [None]
  - OESOPHAGITIS [None]
  - PAIN [None]
  - PALPITATIONS [None]
  - WEIGHT INCREASED [None]
